FAERS Safety Report 14521714 (Version 1)
Quarter: 2018Q1

REPORT INFORMATION
  Report Type: Spontaneous
  Country: JP (occurrence: JP)
  Receive Date: 20180212
  Receipt Date: 20180212
  Transmission Date: 20180509
  Serious: Yes (Death, Other)
  Sender: FDA-Public Use
  Company Number: JP-MYLANLABS-2018M1008969

PATIENT
  Age: 22 Year
  Sex: Female

DRUGS (3)
  1. RANIMUSTINE [Suspect]
     Active Substance: RANIMUSTINE
     Indication: GLIOMA
     Dosage: 100 MG/M2; ON THE FIRST DAY OF RADIATION THERAPY
     Route: 042
  2. TEMOZOLOMIDE. [Suspect]
     Active Substance: TEMOZOLOMIDE
     Indication: GLIOMA
     Dosage: ADMINISTERED FOR 5 DAYS EVERY 4 WEEKS
     Route: 065
  3. INTERFERON BETA NOS [Suspect]
     Active Substance: INTERFERON BETA
     Indication: GLIOMA
     Dosage: 3 MILLION INTERNAL UNITS FOR 7 DAYS
     Route: 065

REACTIONS (3)
  - Drug resistance [Fatal]
  - Rhabdoid tumour [Fatal]
  - Malignant neoplasm progression [Fatal]
